FAERS Safety Report 12736176 (Version 2)
Quarter: 2016Q3

REPORT INFORMATION
  Report Type: Report from Study
  Country: DE (occurrence: DE)
  Receive Date: 20160912
  Receipt Date: 20160926
  Transmission Date: 20161109
  Serious: Yes (Death)
  Sender: FDA-Public Use
  Company Number: PHHY2016DE116535

PATIENT
  Sex: Male
  Weight: 76 kg

DRUGS (8)
  1. NOVODIGAL//BETA-ACETYLDIGOXIN [Concomitant]
     Indication: ATRIAL FIBRILLATION
  2. NOVODIGAL//BETA-ACETYLDIGOXIN [Concomitant]
     Indication: TACHYCARDIA
     Dosage: 0.2 MG, QD
     Route: 065
     Dates: start: 20160517, end: 20160809
  3. REVOLADE [Suspect]
     Active Substance: ELTROMBOPAG
     Indication: IMMUNE THROMBOCYTOPENIC PURPURA
     Dosage: 50 MG, QD
     Route: 048
     Dates: start: 20160712
  4. METOPROLOL. [Concomitant]
     Active Substance: METOPROLOL
     Indication: TACHYCARDIA
     Dosage: 95 MG, BID
     Route: 065
     Dates: start: 20160517, end: 20160809
  5. RAMIPRIL. [Concomitant]
     Active Substance: RAMIPRIL
     Indication: HYPERTENSION
     Dosage: 5 MG, QD
     Route: 065
     Dates: start: 20130915, end: 20160809
  6. FERRO SANOL [Concomitant]
     Active Substance: FERROUS GLYCINE SULFATE
     Indication: IRON DEFICIENCY
     Dosage: 100 MG, QD
     Route: 065
     Dates: start: 20160509, end: 20160809
  7. METOPROLOL. [Concomitant]
     Active Substance: METOPROLOL
     Indication: ATRIAL FIBRILLATION
  8. FUROSEMIDE. [Concomitant]
     Active Substance: FUROSEMIDE
     Indication: PULMONARY HYPERTENSION
     Dosage: 40 MG, BID
     Route: 065
     Dates: start: 20130914, end: 20160809

REACTIONS (4)
  - Renal failure [Fatal]
  - Urinary tract infection [Fatal]
  - Blood lactate dehydrogenase increased [Fatal]
  - Cardiac failure [Fatal]
